FAERS Safety Report 13819150 (Version 2)
Quarter: 2018Q1

REPORT INFORMATION
  Report Type: Report from Study
  Country: US (occurrence: US)
  Receive Date: 20170731
  Receipt Date: 20180201
  Transmission Date: 20180508
  Serious: No
  Sender: FDA-Public Use
  Company Number: US-EXELIXIS-CABO-17008223

PATIENT
  Age: 72 Year
  Sex: Male

DRUGS (7)
  1. PROCHLORPERAZINE. [Concomitant]
     Active Substance: PROCHLORPERAZINE
  2. WARFARIN [Concomitant]
     Active Substance: WARFARIN
  3. FOLIC ACID. [Concomitant]
     Active Substance: FOLIC ACID
  4. AMLODIPINE [Concomitant]
     Active Substance: AMLODIPINE BESYLATE
  5. LEVOTHYROXINE. [Concomitant]
     Active Substance: LEVOTHYROXINE
  6. METOPROLOL. [Concomitant]
     Active Substance: METOPROLOL
  7. CABOMETYX [Suspect]
     Active Substance: CABOZANTINIB S-MALATE
     Indication: RENAL CANCER
     Dosage: 40 MG, QD
     Route: 048
     Dates: start: 201612, end: 201702

REACTIONS (1)
  - Adverse drug reaction [Unknown]

NARRATIVE: CASE EVENT DATE: 201702
